FAERS Safety Report 10666300 (Version 6)
Quarter: 2015Q1

REPORT INFORMATION
  Report Type: Report from Study
  Country: FI (occurrence: FI)
  Receive Date: 20141220
  Receipt Date: 20150330
  Transmission Date: 20150720
  Serious: Yes (Hospitalization, Other)
  Sender: FDA-Public Use
  Company Number: FI-ROCHE-1497431

PATIENT
  Age: 66 Year
  Sex: Female
  Weight: 66 kg

DRUGS (20)
  1. OBINUTUZUMAB [Suspect]
     Active Substance: OBINUTUZUMAB
     Dosage: FREQUENCY AS PER PROTOCOL. 1000MG SPLIT OVER D1/D2 OF C1, THEN 1000MG ADMINISTERED EACH TIME. ?C1D2
     Route: 042
     Dates: start: 20141125, end: 20141125
  2. HISTEC [Concomitant]
     Route: 048
     Dates: start: 20141209, end: 20141209
  3. VALTREX [Concomitant]
     Active Substance: VALACYCLOVIR HYDROCHLORIDE
     Route: 065
     Dates: start: 20141124
  4. VALTREX [Concomitant]
     Active Substance: VALACYCLOVIR HYDROCHLORIDE
     Route: 065
     Dates: start: 20141124
  5. PARATABS [Concomitant]
     Route: 048
     Dates: start: 20141125, end: 20141125
  6. HISTEC [Concomitant]
     Route: 048
     Dates: start: 20141222, end: 20141222
  7. ZOFRAN [Concomitant]
     Active Substance: ONDANSETRON HYDROCHLORIDE
     Indication: PROPHYLAXIS
     Route: 048
     Dates: start: 20141125, end: 20141125
  8. ZYLORIC [Concomitant]
     Active Substance: ALLOPURINOL
     Route: 065
     Dates: start: 20141124
  9. SOLU-MEDROL [Concomitant]
     Active Substance: METHYLPREDNISOLONE SODIUM SUCCINATE
     Route: 042
     Dates: start: 20141222, end: 20141222
  10. PARATABS [Concomitant]
     Route: 048
     Dates: start: 20141222, end: 20141222
  11. HISTEC [Concomitant]
     Route: 048
     Dates: start: 20141125, end: 20141125
  12. OBINUTUZUMAB [Suspect]
     Active Substance: OBINUTUZUMAB
     Indication: CHRONIC LYMPHOCYTIC LEUKAEMIA
     Dosage: FREQUENCY AS PER PROTOCOL. 1000MG SPLIT OVER D1/D2 OF C1, THEN 1000MG ADMINISTERED EACH TIME. ?INFUS
     Route: 042
     Dates: start: 20141124, end: 20141124
  13. PARATABS [Concomitant]
     Route: 048
     Dates: start: 20141209, end: 20141209
  14. SOLU-MEDROL [Concomitant]
     Active Substance: METHYLPREDNISOLONE SODIUM SUCCINATE
     Route: 042
     Dates: start: 20141209, end: 20141209
  15. PARATABS [Concomitant]
     Indication: PROPHYLAXIS
     Route: 048
     Dates: start: 20141124, end: 20141124
  16. HISTEC [Concomitant]
     Indication: PROPHYLAXIS
     Route: 048
     Dates: start: 20141124
  17. OBINUTUZUMAB [Suspect]
     Active Substance: OBINUTUZUMAB
     Route: 042
     Dates: start: 20150213, end: 20150213
  18. SOLU-MEDROL [Concomitant]
     Active Substance: METHYLPREDNISOLONE SODIUM SUCCINATE
     Indication: PROPHYLAXIS
     Route: 042
     Dates: start: 20141124, end: 20141124
  19. SOLU-MEDROL [Concomitant]
     Active Substance: METHYLPREDNISOLONE SODIUM SUCCINATE
     Route: 042
     Dates: start: 20141125, end: 20141125
  20. COTRIM D.S. [Concomitant]
     Active Substance: SULFAMETHOXAZOLE\TRIMETHOPRIM
     Dosage: DAILY DOSE: 160/800MG
     Route: 065
     Dates: start: 20141128

REACTIONS (3)
  - Cytokine release syndrome [Recovered/Resolved]
  - Febrile neutropenia [Recovered/Resolved]
  - Neutropenia [Recovered/Resolved]

NARRATIVE: CASE EVENT DATE: 20141124
